FAERS Safety Report 15342252 (Version 1)
Quarter: 2018Q3

REPORT INFORMATION
  Report Type: Report from Study
  Country: BR (occurrence: BR)
  Receive Date: 20180902
  Receipt Date: 20180902
  Transmission Date: 20181010
  Serious: Yes (Hospitalization)
  Sender: FDA-Public Use
  Company Number: PHHY2018BR009154

PATIENT
  Sex: Female
  Weight: 75 kg

DRUGS (1)
  1. SANDOSTATIN LAR DEPOT [Suspect]
     Active Substance: OCTREOTIDE ACETATE
     Indication: ACROMEGALY
     Dosage: 40 MG, QMO (EVERY 28 DAYS)
     Route: 030
     Dates: start: 2012

REACTIONS (5)
  - Oedema [Unknown]
  - Swelling [Recovered/Resolved]
  - Therapeutic response decreased [Not Recovered/Not Resolved]
  - Growth accelerated [Recovered/Resolved]
  - Hormone level abnormal [Not Recovered/Not Resolved]
